FAERS Safety Report 18014798 (Version 2)
Quarter: 2020Q3

REPORT INFORMATION
  Report Type: Spontaneous
  Country: JP (occurrence: JP)
  Receive Date: 20200713
  Receipt Date: 20200820
  Transmission Date: 20201103
  Serious: Yes (Other)
  Sender: FDA-Public Use
  Company Number: JP-PFIZER INC-2020264992

PATIENT
  Age: 5 Decade
  Sex: Male

DRUGS (1)
  1. EFFEXOR [Suspect]
     Active Substance: VENLAFAXINE HYDROCHLORIDE
     Dosage: 37.5 MG, DAILY
     Route: 048

REACTIONS (2)
  - Homicidal ideation [Unknown]
  - Suicidal ideation [Recovered/Resolved]
